FAERS Safety Report 25182159 (Version 1)
Quarter: 2025Q2

REPORT INFORMATION
  Report Type: Spontaneous
  Country: US (occurrence: US)
  Receive Date: 20250410
  Receipt Date: 20250410
  Transmission Date: 20250717
  Serious: No
  Sender: KINIKSA PHARMACEUTICALS
  Company Number: US-Kiniksa Pharmaceuticals Ltd.-2023KPU000059

PATIENT
  Age: 53 Year
  Sex: Female

DRUGS (1)
  1. ARCALYST [Suspect]
     Active Substance: RILONACEPT
     Indication: Product used for unknown indication
     Route: 058

REACTIONS (17)
  - Ear infection [Unknown]
  - Pyrexia [Unknown]
  - Sinus disorder [Unknown]
  - Inflammation [Unknown]
  - Pleurisy [Unknown]
  - Ear pain [Unknown]
  - Tympanic membrane perforation [Unknown]
  - Eustachian tube dysfunction [Unknown]
  - Hypoacusis [Unknown]
  - Balance disorder [Unknown]
  - Ear haemorrhage [Unknown]
  - Chest pain [Unknown]
  - Toothache [Unknown]
  - Pain in jaw [Unknown]
  - Urticaria [Unknown]
  - Diarrhoea [Unknown]
  - Cardiac disorder [Unknown]
